FAERS Safety Report 12336810 (Version 2)
Quarter: 2016Q2

REPORT INFORMATION
  Report Type: Spontaneous
  Country: JP (occurrence: JP)
  Receive Date: 20160505
  Receipt Date: 20160613
  Transmission Date: 20160815
  Serious: Yes (Other)
  Sender: FDA-Public Use
  Company Number: JP-TEVA-657219ISR

PATIENT
  Age: 76 Year
  Sex: Male
  Weight: 47 kg

DRUGS (8)
  1. AMPHOTERICIN B. [Suspect]
     Active Substance: AMPHOTERICIN B
     Indication: ANTIFUNGAL TREATMENT
     Dosage: 150 MILLIGRAM DAILY; 150 MG/DAY
     Route: 042
  2. IMMUNE GLOBULIN [Concomitant]
     Active Substance: HUMAN IMMUNOGLOBULIN G
     Indication: HYPOGAMMAGLOBULINAEMIA
     Dosage: 5000 MG/DOSE
     Route: 065
  3. FLUCONAZOLE. [Suspect]
     Active Substance: FLUCONAZOLE
     Indication: ANTIFUNGAL TREATMENT
     Dosage: 800 MILLIGRAM DAILY; 800 MG/DAY FOR THE FIRST TWO DAYS
     Route: 042
  4. MICONAZOLE. [Suspect]
     Active Substance: MICONAZOLE
     Indication: ANTIFUNGAL TREATMENT
     Dosage: 20 MILLIGRAM DAILY; 20MG/DAY ON ALTERNATE DAYS FOR 2 WEEKS
  5. FLUCONAZOLE. [Suspect]
     Active Substance: FLUCONAZOLE
     Dosage: 400 MILLIEQUIVALENTS DAILY; 400 MG/DAY
     Route: 048
  6. FLUCONAZOLE. [Suspect]
     Active Substance: FLUCONAZOLE
     Dosage: 400 MILLIGRAM DAILY; 400 MG/DAY THIRD DAY ONWARDS
     Route: 042
  7. VORICONAZOLE. [Suspect]
     Active Substance: VORICONAZOLE
     Indication: ANTIFUNGAL TREATMENT
     Dosage: 300 MILLIGRAM DAILY; 300 MG/DAY
     Route: 041
  8. AMPHOTERICIN B. [Suspect]
     Active Substance: AMPHOTERICIN B
     Dosage: 150 MILLIGRAM DAILY; 150 MG/DAY
     Route: 041

REACTIONS (4)
  - Renal failure [Recovering/Resolving]
  - Dizziness [Unknown]
  - Pyrexia [Unknown]
  - Hemiplegia [Unknown]
